FAERS Safety Report 24741181 (Version 3)
Quarter: 2025Q3

REPORT INFORMATION
  Report Type: Spontaneous
  Country: US (occurrence: US)
  Receive Date: 20241217
  Receipt Date: 20250816
  Transmission Date: 20251021
  Serious: No
  Sender: ALEXION PHARMACEUTICALS
  Company Number: US-AstraZeneca-CH-00765238A

PATIENT
  Sex: Female

DRUGS (4)
  1. BYDUREON BCISE [Suspect]
     Active Substance: EXENATIDE
     Route: 065
  2. BYETTA [Suspect]
     Active Substance: EXENATIDE
     Route: 065
  3. OZEMPIC [Concomitant]
     Active Substance: SEMAGLUTIDE
     Route: 065
  4. Realta [Concomitant]
     Route: 065

REACTIONS (4)
  - Memory impairment [Unknown]
  - Tremor [Recovered/Resolved]
  - Weight decreased [Unknown]
  - Therapy cessation [Unknown]
